FAERS Safety Report 10729279 (Version 1)
Quarter: 2015Q1

REPORT INFORMATION
  Report Type: Other
  Country: DE (occurrence: DE)
  Receive Date: 20150122
  Receipt Date: 20150122
  Transmission Date: 20150721
  Serious: Yes (Congenital Anomaly)
  Sender: FDA-Public Use
  Company Number: DE-MYLANLABS-2015M1000722

PATIENT

DRUGS (3)
  1. FOLS?URE [Concomitant]
     Indication: PROPHYLAXIS OF NEURAL TUBE DEFECT
     Dosage: UNK
     Route: 064
     Dates: start: 20140515, end: 20140928
  2. METFORMIN [Suspect]
     Active Substance: METFORMIN HYDROCHLORIDE
     Indication: INSULIN RESISTANCE
     Dosage: 1275 [MG/D ]/ ALSO FOR PCOS
     Route: 064
     Dates: start: 20140515, end: 20140715
  3. PREDNISOLON [Concomitant]
     Active Substance: PREDNISOLONE
     Indication: PROPHYLAXIS OF ABORTION
     Dosage: 2.5 [MG/D ]
     Route: 064
     Dates: start: 20140515, end: 20140815

REACTIONS (7)
  - Hypoplastic left heart syndrome [Not Recovered/Not Resolved]
  - Pulmonary hypoplasia [Not Recovered/Not Resolved]
  - Mitral valve atresia [Not Recovered/Not Resolved]
  - Asplenia [Not Recovered/Not Resolved]
  - Aorta hypoplasia [Not Recovered/Not Resolved]
  - Congenital cystic kidney disease [Not Recovered/Not Resolved]
  - Foetal exposure during pregnancy [Unknown]
